FAERS Safety Report 20813026 (Version 1)
Quarter: 2022Q2

REPORT INFORMATION
  Report Type: Spontaneous
  Country: JP (occurrence: JP)
  Receive Date: 20220511
  Receipt Date: 20220511
  Transmission Date: 20220721
  Serious: No
  Sender: FDA-Public Use
  Company Number: JP-LUPIN PHARMACEUTICALS INC.-2022-06820

PATIENT
  Age: 74 Year
  Sex: Male

DRUGS (7)
  1. METHYLPREDNISOLONE [Suspect]
     Active Substance: METHYLPREDNISOLONE
     Indication: COVID-19
     Dosage: STEROID PULSE THERAPY
     Route: 065
  2. DEXAMETHASONE [Suspect]
     Active Substance: DEXAMETHASONE
     Indication: COVID-19
     Dosage: UNK
     Route: 065
  3. REMDESIVIR [Suspect]
     Active Substance: REMDESIVIR
     Indication: COVID-19
     Dosage: UNK
     Route: 065
  4. FAVIPIRAVIR [Suspect]
     Active Substance: FAVIPIRAVIR
     Indication: COVID-19
     Dosage: UNK
     Route: 065
  5. HEPARIN SODIUM [Concomitant]
     Active Substance: HEPARIN SODIUM
     Indication: Anticoagulant therapy
     Dosage: THE CONTINUOUS INTRAVENOUS INFUSION OF 10000 U/DAY OF HEPARIN SODIUM WERE STARTED
     Route: 042
  6. NAFAMOSTAT [Concomitant]
     Active Substance: NAFAMOSTAT
     Indication: Anticoagulant therapy
     Dosage: CONTINUOUS HEMODIAFILTRATION (CHDF) WITH NAFAMOSTAT (20 MG/HOUR)
     Route: 065
  7. NAFAMOSTAT [Concomitant]
     Active Substance: NAFAMOSTAT
     Dosage: THE DOSE OF NAFAMOSTAT WAS GRADUALLY INCREASED TO 60 MG/HOUR ON DAY 9.
     Route: 065

REACTIONS (1)
  - Off label use [Unknown]
